FAERS Safety Report 20317356 (Version 5)
Quarter: 2023Q4

REPORT INFORMATION
  Report Type: Spontaneous
  Country: JP (occurrence: JP)
  Receive Date: 20220110
  Receipt Date: 20231201
  Transmission Date: 20240110
  Serious: Yes (Hospitalization, Other)
  Sender: FDA-Public Use
  Company Number: JP-RECORDATI-2021004452

PATIENT

DRUGS (14)
  1. ISTURISA [Suspect]
     Active Substance: OSILODROSTAT PHOSPHATE
     Indication: Hyperadrenocorticism
     Dosage: 2 MILLIGRAM DAILY (BID)
     Route: 048
     Dates: start: 20210924, end: 20211003
  2. ISTURISA [Suspect]
     Active Substance: OSILODROSTAT PHOSPHATE
     Indication: Cushing^s syndrome
     Dosage: 4 MILLIGRAM DAILY (BID)
     Route: 048
     Dates: start: 20211004, end: 20211223
  3. HUMALOG [Concomitant]
     Active Substance: INSULIN LISPRO
     Indication: Product used for unknown indication
     Dosage: UNK
     Route: 065
     Dates: start: 20210929, end: 20211203
  4. VILDAGLIPTIN [Concomitant]
     Active Substance: VILDAGLIPTIN
     Indication: Disease complication
     Dosage: 100 MILLIGRAM
     Route: 048
  5. AMARYL [Concomitant]
     Active Substance: GLIMEPIRIDE
     Indication: Disease complication
     Dosage: 2 MILLIGRAM
     Route: 048
  6. AMLODIPINE BESYLATE [Concomitant]
     Active Substance: AMLODIPINE BESYLATE
     Indication: Disease complication
     Dosage: 5 MILLIGRAM
     Route: 048
  7. OLMESARTAN MEDOXOMIL [Concomitant]
     Active Substance: OLMESARTAN MEDOXOMIL
     Indication: Disease complication
     Dosage: 40 MILLIGRAM
     Route: 048
  8. VIBRAMYCIN [DOXYCYCLINE HYDROCHLORIDE] [Concomitant]
     Indication: Product used for unknown indication
     Dosage: UNK
     Route: 065
     Dates: start: 20210929, end: 20211203
  9. LANSOPRAZOLE [Concomitant]
     Active Substance: LANSOPRAZOLE
     Indication: Disease complication
     Dosage: 15 MILLIGRAM
     Route: 048
  10. RISEDRONATE SODIUM [Concomitant]
     Active Substance: RISEDRONATE SODIUM
     Indication: Disease complication
     Dosage: 17.5 MILLIGRAM, QW
     Route: 048
  11. SULFAMETHOXAZOLE\TRIMETHOPRIM [Concomitant]
     Active Substance: SULFAMETHOXAZOLE\TRIMETHOPRIM
     Indication: Prophylaxis
     Dosage: 1 DOSAGE FORM
     Route: 048
  12. CITRIC ACID [Concomitant]
     Active Substance: CITRIC ACID MONOHYDRATE
     Indication: Iron deficiency anaemia
     Dosage: 50 MILLIGRAM DAILY
     Route: 048
     Dates: start: 20210929, end: 20211217
  13. VESICARE [Concomitant]
     Active Substance: SOLIFENACIN SUCCINATE
     Indication: Disease complication
     Dosage: 2.5 MILLIGRAM
     Route: 048
     Dates: start: 20211217, end: 20220624
  14. EDOXABAN TOSYLATE [Concomitant]
     Active Substance: EDOXABAN TOSYLATE
     Indication: Deep vein thrombosis
     Dosage: 60 MILLIGRAM
     Route: 048
     Dates: start: 20211217, end: 20211222

REACTIONS (8)
  - Septal panniculitis [Recovering/Resolving]
  - Electrocardiogram QT prolonged [Recovered/Resolved]
  - Blood alkaline phosphatase increased [Recovered/Resolved]
  - Blood creatinine increased [Recovered/Resolved]
  - Road traffic accident [Recovering/Resolving]
  - Upper limb fracture [Recovering/Resolving]
  - Blood potassium decreased [Not Recovered/Not Resolved]
  - Therapeutic product effect incomplete [Recovered/Resolved]

NARRATIVE: CASE EVENT DATE: 20211004
